FAERS Safety Report 8378611-0 (Version None)
Quarter: 2012Q2

REPORT INFORMATION
  Report Type: 
  Country: None (occurrence: None)
  Receive Date: 20120522
  Receipt Date: 20110621
  Transmission Date: 20120825
  Serious: No
  Sender: FDA-Public Use
  Company Number: US-ASTRAZENECA-2011SE37731

PATIENT

DRUGS (19)
  1. TRICOR [Concomitant]
  2. PATADAY [Concomitant]
     Dosage: EVERY DAY
     Route: 047
  3. PRILOSEC [Suspect]
     Route: 048
  4. JANUVIA [Concomitant]
  5. ROBAXIN [Concomitant]
  6. DAILY VITAMIN [Concomitant]
     Dosage: EVERY DAY
  7. CRESTOR [Suspect]
     Route: 048
  8. REMERON [Concomitant]
  9. VIGAMOX [Concomitant]
     Dosage: 0.5 PERCENT DRO 4 X DAY
     Route: 047
  10. DYAZIDE [Concomitant]
  11. NITROGLYCERIN [Concomitant]
  12. GLUCOPHAGE XR [Concomitant]
  13. ASPIRIN [Concomitant]
     Dosage: AT NIGHT
  14. BROMDAY [Concomitant]
     Dosage: EVERY DAY
     Route: 047
  15. ATENOLOL [Concomitant]
     Route: 048
  16. ZOLOFT [Concomitant]
  17. FISH OIL [Concomitant]
  18. LOTREL [Concomitant]
     Dosage: 5/20 MG EVERY DAY
  19. ACTOS [Concomitant]

REACTIONS (6)
  - DIABETES MELLITUS [None]
  - ARTHRITIS [None]
  - GASTROOESOPHAGEAL REFLUX DISEASE [None]
  - HYPERTENSION [None]
  - BLOOD CHOLESTEROL INCREASED [None]
  - HEART VALVE INCOMPETENCE [None]
